FAERS Safety Report 8287501-3 (Version None)
Quarter: 2012Q2

REPORT INFORMATION
  Report Type: 
  Country: None (occurrence: None)
  Receive Date: 20120410
  Receipt Date: 20120410
  Transmission Date: 20120825
  Serious: Yes (Other)
  Sender: FDA-Public Use
  Company Number: None

PATIENT
  Age: 81 Year
  Sex: Male
  Weight: 99.3377 kg

DRUGS (1)
  1. CIPRO [Suspect]
     Indication: ULCER
     Dosage: 400MG IV Q12 IV
     Route: 042
     Dates: start: 20120323

REACTIONS (1)
  - PRURITUS [None]
